FAERS Safety Report 8128549-9 (Version None)
Quarter: 2012Q1

REPORT INFORMATION
  Report Type: 
  Country: None (occurrence: None)
  Receive Date: 20120210
  Receipt Date: 20111206
  Transmission Date: 20120608
  Serious: No
  Sender: FDA-Public Use
  Company Number: US-BRISTOL-MYERS SQUIBB COMPANY-16272478

PATIENT
  Age: 49 Year
  Sex: Female
  Weight: 113 kg

DRUGS (13)
  1. OMEPRAZOLE [Concomitant]
  2. LEVEMIR [Concomitant]
  3. HYDROCODONE BITARTRATE [Concomitant]
  4. ISOSORBIDE MONONITRATE [Concomitant]
  5. NIACIN [Concomitant]
  6. ORENCIA [Suspect]
     Dosage: NO OF INF:4,LAST DOSE 18NOV11
     Route: 042
  7. HYDROCORTISONE [Concomitant]
     Dosage: 1 DF = 20-25 MG
  8. GLIPIZIDE [Concomitant]
  9. RANEXA [Concomitant]
  10. PLAQUENIL [Concomitant]
     Dosage: 1 DF = 200 UNM
  11. XANAX [Concomitant]
  12. FOSAMAX [Concomitant]
  13. BYSTOLIC [Concomitant]

REACTIONS (4)
  - PAIN IN EXTREMITY [None]
  - FATIGUE [None]
  - ARTHRALGIA [None]
  - HEADACHE [None]
